FAERS Safety Report 22300114 (Version 4)
Quarter: 2023Q4

REPORT INFORMATION
  Report Type: Spontaneous
  Country: US (occurrence: US)
  Receive Date: 20230509
  Receipt Date: 20231110
  Transmission Date: 20240110
  Serious: Yes (Hospitalization, Other)
  Sender: FDA-Public Use
  Company Number: US-BRISTOL-MYERS SQUIBB COMPANY-2023-063583

PATIENT
  Age: 84 Year
  Sex: Female
  Weight: 56.25 kg

DRUGS (1)
  1. LENALIDOMIDE [Suspect]
     Active Substance: LENALIDOMIDE
     Indication: Plasma cell myeloma
     Dosage: TAKE 1 CAPSULE WHOLE BY MOUTH WITH WATER AT SAME TIME DAILY ON DAYS 1-21 OF EACH 28 DAY CYCLE?17-JAN
     Route: 048
     Dates: start: 20221105

REACTIONS (10)
  - Peripheral swelling [Not Recovered/Not Resolved]
  - Heart rate irregular [Recovered/Resolved]
  - Oedema peripheral [Recovered/Resolved]
  - Product dose omission issue [Recovered/Resolved]
  - Pain in extremity [Not Recovered/Not Resolved]
  - Pain [Not Recovered/Not Resolved]
  - Dry skin [Unknown]
  - Gait disturbance [Unknown]
  - Drug ineffective [Unknown]
  - Laboratory test abnormal [Recovered/Resolved]
